FAERS Safety Report 8870975 (Version 1)
Quarter: 2012Q4

REPORT INFORMATION
  Report Type: 
  Country: US (occurrence: US)
  Receive Date: 20121026
  Receipt Date: 20121026
  Transmission Date: 20130627
  Serious: No
  Sender: FDA-Public Use
  Company Number: US-AMGEN-USASP2012046561

PATIENT
  Sex: Female
  Weight: 72.56 kg

DRUGS (6)
  1. ENBREL [Suspect]
     Indication: PRODUCT USED FOR UNKNOWN INDICATION
     Dosage: 50 mg, 2 times/wk
     Route: 058
  2. SINGULAIR MINI [Concomitant]
     Dosage: 5 mg, UNK
  3. COREG [Concomitant]
     Dosage: 25 mg, UNK
  4. HYDROCHLOROTH [Concomitant]
     Dosage: 12.5 mg, UNK
  5. CLARITIN                           /00413701/ [Concomitant]
     Dosage: 10 mg, UNK
  6. VITAMIN D /00107901/ [Concomitant]
     Dosage: 1000 unit,

REACTIONS (4)
  - Injection site reaction [Unknown]
  - Injection site erythema [Unknown]
  - Injection site warmth [Unknown]
  - Fatigue [Unknown]
